FAERS Safety Report 25601657 (Version 1)
Quarter: 2025Q3

REPORT INFORMATION
  Report Type: Spontaneous
  Country: US (occurrence: None)
  Receive Date: 20250723
  Receipt Date: 20250723
  Transmission Date: 20251020
  Serious: Yes (Disabling)
  Sender: FDA-CTU
  Company Number: None

PATIENT
  Age: 24 Year
  Sex: Female
  Weight: 53 kg

DRUGS (1)
  1. ZYPREXA [Suspect]
     Active Substance: OLANZAPINE
     Indication: Initial insomnia
     Dosage: FREQUENCY : AT BEDTIME;?
     Route: 048
     Dates: start: 20240106

REACTIONS (16)
  - Weight increased [None]
  - Blood glucose abnormal [None]
  - Malaise [None]
  - Hyperhidrosis [None]
  - Vomiting [None]
  - Anxiety [None]
  - Panic attack [None]
  - Suicidal ideation [None]
  - Feeling abnormal [None]
  - Dyspnoea [None]
  - Sleep disorder [None]
  - Injury [None]
  - Metabolic disorder [None]
  - Insulin resistance [None]
  - Drug dependence [None]
  - Drug withdrawal syndrome [None]

NARRATIVE: CASE EVENT DATE: 20240306
